FAERS Safety Report 15526803 (Version 1)
Quarter: 2018Q4

REPORT INFORMATION
  Report Type: Spontaneous
  Country: CN (occurrence: CN)
  Receive Date: 20181018
  Receipt Date: 20181018
  Transmission Date: 20190205
  Serious: Yes (Life-Threatening)
  Sender: FDA-Public Use
  Company Number: CN-009507513-1810CHN006480

PATIENT
  Age: 83 Year
  Sex: Female

DRUGS (8)
  1. TIENAM [Suspect]
     Active Substance: CILASTATIN SODIUM\IMIPENEM
     Indication: SEPSIS
     Dosage: 1 G, QD
     Route: 041
     Dates: start: 20180720, end: 20180725
  2. DIAZEPAN [Concomitant]
     Active Substance: DIAZEPAM
     Indication: EPILEPSY
     Dosage: 10 MG, QD PUMP INJECTION
     Dates: start: 20180725, end: 20180725
  3. POTASSIUM CHLORIDE. [Concomitant]
     Active Substance: POTASSIUM CHLORIDE
     Indication: FLUID REPLACEMENT
  4. QING KAI LING [Concomitant]
     Active Substance: HERBALS
     Indication: UPPER RESPIRATORY TRACT INFECTION
     Dosage: 40 ML, QD
     Route: 041
     Dates: start: 20180718, end: 20180725
  5. PIPERACILLIN AND TAZOBACTAM [Concomitant]
     Active Substance: PIPERACILLIN SODIUM\TAZOBACTAM SODIUM
     Indication: SEPSIS
     Dosage: 5 G, BID
     Route: 041
     Dates: start: 20180720, end: 20180725
  6. PANTOPRAZOLE [Concomitant]
     Active Substance: PANTOPRAZOLE
     Indication: HYPERCHLORHYDRIA
     Dosage: 42.3 MG QD
     Route: 041
     Dates: start: 20180721, end: 20180725
  7. FAT (UNSPECIFIED) [Concomitant]
     Indication: NUTRITIONAL SUPPLEMENTATION
     Dosage: 250 ML, QD
     Route: 042
     Dates: start: 20180721, end: 20180725
  8. POTASSIUM CHLORIDE. [Concomitant]
     Active Substance: POTASSIUM CHLORIDE
     Indication: MINERAL SUPPLEMENTATION
     Dosage: 0.5 G, QD
     Route: 042
     Dates: start: 20180721, end: 20180725

REACTIONS (7)
  - Muscle rigidity [Recovering/Resolving]
  - Foaming at mouth [Recovering/Resolving]
  - Loss of consciousness [Recovering/Resolving]
  - Dyspnoea [Recovering/Resolving]
  - Pyrexia [Recovering/Resolving]
  - Muscle tightness [Recovering/Resolving]
  - Tremor [Recovering/Resolving]

NARRATIVE: CASE EVENT DATE: 20180725
